FAERS Safety Report 5424564-4 (Version None)
Quarter: 2007Q3

REPORT INFORMATION
  Report Type: 
  Country: None (occurrence: None)
  Receive Date: 20070822
  Receipt Date: 20070809
  Transmission Date: 20080115
  Serious: Yes (Other)
  Sender: FDA-Public Use
  Company Number: 6036773

PATIENT
  Sex: Male

DRUGS (1)
  1. DIABEX (TABLET) (METFORMIN) [Suspect]
     Indication: DRUG USE FOR UNKNOWN INDICATION
     Dosage: 1000 MG (1000 MG, 1 ) ORAL
     Route: 048

REACTIONS (1)
  - HEPATITIS [None]
